FAERS Safety Report 18928782 (Version 1)
Quarter: 2021Q1

REPORT INFORMATION
  Report Type: Spontaneous
  Country: US (occurrence: US)
  Receive Date: 20210223
  Receipt Date: 20210223
  Transmission Date: 20210420
  Serious: Yes (Other)
  Sender: FDA-Public Use
  Company Number: US-PFIZER INC-2021166244

PATIENT
  Age: 45 Year
  Sex: Female

DRUGS (4)
  1. BLEOMYCIN [Concomitant]
     Active Substance: BLEOMYCIN SULFATE
     Indication: HODGKIN^S DISEASE
     Dosage: UNK UNK, CYCLIC(6 CYCLES (CUMULATIVE ANTHRACYCLINE DOSE 300 MG/M2))
  2. DACARBAZINE. [Concomitant]
     Active Substance: DACARBAZINE
     Indication: HODGKIN^S DISEASE
     Dosage: UNK UNK, CYCLIC(6 CYCLES (CUMULATIVE ANTHRACYCLINE DOSE 300 MG/M2))
  3. DOXORUBICIN HCL [Suspect]
     Active Substance: DOXORUBICIN HYDROCHLORIDE
     Indication: HODGKIN^S DISEASE
     Dosage: UNK UNK, CYCLIC(6 CYCLES (CUMULATIVE ANTHRACYCLINE DOSE 300 MG/M2))
  4. VINBLASTINE [Concomitant]
     Active Substance: VINBLASTINE
     Indication: HODGKIN^S DISEASE
     Dosage: UNK UNK, CYCLIC (6 CYCLES (CUMULATIVE ANTHRACYCLINE DOSE 300 MG/M2))

REACTIONS (7)
  - Aortic valve incompetence [Not Recovered/Not Resolved]
  - Mitral valve thickening [Unknown]
  - Cardiotoxicity [Unknown]
  - Aortic valve thickening [Unknown]
  - Left ventricular hypertrophy [Unknown]
  - Mitral valve incompetence [Not Recovered/Not Resolved]
  - Coronary artery stenosis [Unknown]
